FAERS Safety Report 19047128 (Version 2)
Quarter: 2021Q2

REPORT INFORMATION
  Report Type: Report from Study
  Country: US (occurrence: US)
  Receive Date: 20210323
  Receipt Date: 20210426
  Transmission Date: 20210717
  Serious: Yes (Other)
  Sender: FDA-Public Use
  Company Number: NVSC2021US061270

PATIENT
  Sex: Female

DRUGS (1)
  1. COSENTYX [Suspect]
     Active Substance: SECUKINUMAB
     Indication: PRODUCT USED FOR UNKNOWN INDICATION
     Dosage: UNK UNK, UNKNOWN
     Route: 065

REACTIONS (8)
  - Pain [Unknown]
  - Gait disturbance [Unknown]
  - Joint swelling [Unknown]
  - Skin disorder [Unknown]
  - Arthralgia [Unknown]
  - Product dose omission issue [Unknown]
  - Psoriasis [Unknown]
  - Psoriatic arthropathy [Unknown]
